FAERS Safety Report 14371656 (Version 3)
Quarter: 2018Q1

REPORT INFORMATION
  Report Type: Spontaneous
  Country: US (occurrence: US)
  Receive Date: 20180110
  Receipt Date: 20180219
  Transmission Date: 20180509
  Serious: Yes (Hospitalization, Other)
  Sender: FDA-Public Use
  Company Number: US-GLAXOSMITHKLINE-US2018002380

PATIENT
  Sex: Female

DRUGS (14)
  1. NUCALA [Suspect]
     Active Substance: MEPOLIZUMAB
     Indication: ASTHMA
     Dosage: UNK UNK, CYC
     Route: 042
     Dates: start: 20171112
  2. BACTRIM [Concomitant]
     Active Substance: SULFAMETHOXAZOLE\TRIMETHOPRIM
  3. CLONAZEPAN [Concomitant]
     Active Substance: CLONAZEPAM
  4. LEVALBUTEROL NEBULIZER [Concomitant]
     Active Substance: LEVALBUTEROL
  5. SALINE NEBULIZER [Concomitant]
  6. VERAPAMIL [Concomitant]
     Active Substance: VERAPAMIL HYDROCHLORIDE
  7. ZITHROMAX [Concomitant]
     Active Substance: AZITHROMYCIN DIHYDRATE
  8. SINGULAIR [Concomitant]
     Active Substance: MONTELUKAST SODIUM
  9. FLOVENT DISKUS [Concomitant]
     Active Substance: FLUTICASONE PROPIONATE
  10. FOSAMAX [Concomitant]
     Active Substance: ALENDRONATE SODIUM
  11. LEVAQUIN [Concomitant]
     Active Substance: LEVOFLOXACIN
  12. PREDNISONE. [Concomitant]
     Active Substance: PREDNISONE
  13. ADVAIR HFA [Concomitant]
     Active Substance: FLUTICASONE PROPIONATE\SALMETEROL XINAFOATE
  14. VENTOLIN [Concomitant]
     Active Substance: ALBUTEROL SULFATE
     Dosage: UNK UNK, PRN

REACTIONS (1)
  - Pneumonia [Not Recovered/Not Resolved]
